FAERS Safety Report 8936553 (Version 3)
Quarter: 2013Q4

REPORT INFORMATION
  Report Type: Report from Study
  Country: JP (occurrence: JP)
  Receive Date: 20121130
  Receipt Date: 20131210
  Transmission Date: 20140711
  Serious: Yes (Hospitalization, Other)
  Sender: FDA-Public Use
  Company Number: JP-VERTEX PHARMACEUTICAL INC.-AE-2012-009996

PATIENT
  Age: 63 Year
  Sex: Female

DRUGS (12)
  1. VX-950 (TELAPREVIR) [Suspect]
     Indication: CHRONIC HEPATITIS C
     Dosage: 1500 MG, QD
     Route: 048
     Dates: start: 20120515, end: 20120702
  2. PEGINTRON [Suspect]
     Indication: CHRONIC HEPATITIS C
     Dosage: 1.2 ?G/KG, QW
     Route: 058
     Dates: start: 20120515, end: 20120529
  3. PEGINTRON [Suspect]
     Dosage: 50 ?G/KG,QW
     Route: 058
     Dates: start: 20120606, end: 20120627
  4. REBETOL [Suspect]
     Indication: CHRONIC HEPATITIS C
     Dosage: 600 MG, QD
     Route: 048
     Dates: start: 20120515, end: 20120612
  5. REBETOL [Suspect]
     Dosage: 200 MG, QD
     Route: 048
     Dates: start: 20120613, end: 20120626
  6. REBETOL [Suspect]
     Dosage: 400 MG, QD
     Route: 048
     Dates: start: 20120627, end: 20120702
  7. URSO [Concomitant]
     Dosage: 450 MG, QD
     Route: 048
  8. URSO [Concomitant]
     Dosage: 900 MG, QD
     Route: 048
     Dates: end: 20120702
  9. BIO-THREE [Concomitant]
     Dosage: 6 DF, QD
     Route: 048
     Dates: start: 20120522
  10. PROCTOSEDYL [Concomitant]
     Route: 061
  11. GAMOFA [Concomitant]
     Dosage: 20 MG, QD
     Route: 042
     Dates: start: 20120703, end: 20120709
  12. PANTHENYL [Concomitant]
     Dosage: 500 MG, QD
     Route: 042
     Dates: start: 20120703, end: 20120704

REACTIONS (6)
  - Urinary bladder haemorrhage [Recovered/Resolved]
  - Bladder tamponade [Recovered/Resolved]
  - Diarrhoea [Recovered/Resolved]
  - White blood cell count decreased [Recovered/Resolved]
  - Urinary tract infection [Recovered/Resolved]
  - Anaemia [Recovered/Resolved]
